FAERS Safety Report 6733282-1 (Version None)
Quarter: 2010Q2

REPORT INFORMATION
  Report Type: 
  Country: None (occurrence: None)
  Receive Date: 20100520
  Receipt Date: 20100512
  Transmission Date: 20101027
  Serious: Yes (Other)
  Sender: FDA-Public Use
  Company Number: CA-JNJFOC-20100505273

PATIENT
  Age: 54 Year
  Sex: Male

DRUGS (2)
  1. TRAMADOL HCL [Suspect]
     Indication: DRUG USE FOR UNKNOWN INDICATION
     Route: 065
  2. INSULIN [Suspect]
     Indication: DIABETES MELLITUS
     Route: 065

REACTIONS (2)
  - CONVULSION [None]
  - HYPOGLYCAEMIA [None]
